FAERS Safety Report 12328614 (Version 1)
Quarter: 2016Q2

REPORT INFORMATION
  Report Type: Spontaneous
  Country: US (occurrence: US)
  Receive Date: 20160503
  Receipt Date: 20160503
  Transmission Date: 20160815
  Serious: No
  Sender: FDA-Public Use
  Company Number: US-BEH-2015049607

PATIENT
  Sex: Female
  Weight: 86 kg

DRUGS (13)
  1. EPIPEN [Concomitant]
     Active Substance: EPINEPHRINE
  2. HIZENTRA [Suspect]
     Active Substance: HUMAN IMMUNOGLOBULIN G
     Indication: IMMUNODEFICIENCY COMMON VARIABLE
     Dosage: 4 GM 20 ML VIAL; DOSING PERIOD 20FEB2015-19MAR2015
     Route: 058
  3. FORADIL [Concomitant]
     Active Substance: FORMOTEROL FUMARATE
  4. HIZENTRA [Suspect]
     Active Substance: HUMAN IMMUNOGLOBULIN G
     Dosage: 1 GM 5 ML VIAL;DOSING PERIOD 20FEB2015-19MAR2015
     Route: 058
  5. ACETAMINOPHEN. [Concomitant]
     Active Substance: ACETAMINOPHEN
  6. SINGULAIR [Concomitant]
     Active Substance: MONTELUKAST SODIUM
  7. DIPHENHYDRAMINE. [Concomitant]
     Active Substance: DIPHENHYDRAMINE
  8. LMX [Concomitant]
     Active Substance: LIDOCAINE
  9. ALEVE [Concomitant]
     Active Substance: NAPROXEN SODIUM
  10. OXYGEN. [Concomitant]
     Active Substance: OXYGEN
  11. ADVIL [Concomitant]
     Active Substance: IBUPROFEN
  12. ALBUTEROL. [Concomitant]
     Active Substance: ALBUTEROL
  13. TYLENOL [Concomitant]
     Active Substance: ACETAMINOPHEN

REACTIONS (1)
  - Fatigue [Unknown]
